FAERS Safety Report 9903892 (Version 1)
Quarter: 2014Q1

REPORT INFORMATION
  Report Type: Spontaneous
  Country: US (occurrence: US)
  Receive Date: 20140218
  Receipt Date: 20140218
  Transmission Date: 20141002
  Serious: No
  Sender: FDA-Public Use
  Company Number: US-BIOGENIDEC-2014BI014268

PATIENT
  Age: 32 Year
  Sex: Female

DRUGS (1)
  1. TYSABRI [Suspect]
     Indication: MULTIPLE SCLEROSIS
     Route: 042
     Dates: start: 20111123, end: 20130411

REACTIONS (7)
  - Anaemia [Not Recovered/Not Resolved]
  - Gait disturbance [Unknown]
  - Balance disorder [Unknown]
  - Urinary incontinence [Recovered/Resolved]
  - Central nervous system lesion [Not Recovered/Not Resolved]
  - Kidney infection [Unknown]
  - Urinary tract infection [Unknown]
